FAERS Safety Report 9641274 (Version 1)
Quarter: 2013Q4

REPORT INFORMATION
  Report Type: Spontaneous
  Country: US (occurrence: US)
  Receive Date: 20131023
  Receipt Date: 20131023
  Transmission Date: 20140711
  Serious: Yes (Other)
  Sender: FDA-Public Use
  Company Number: US-PFIZER INC-2013298880

PATIENT
  Age: 70 Year
  Sex: Male

DRUGS (20)
  1. VANCOMYCIN HCL [Suspect]
     Indication: PNEUMONIA
     Dosage: UNK
     Route: 065
     Dates: start: 201309
  2. ANCEF [Suspect]
     Indication: PNEUMONIA
     Dosage: UNK
     Route: 065
     Dates: start: 201309
  3. REVLIMID [Suspect]
     Indication: PLASMA CELL MYELOMA
     Dosage: 5 MG, DAILY
     Route: 048
     Dates: start: 201308
  4. LABETALOL HYDROCHLORIDE [Concomitant]
     Dosage: UNK
  5. SODIUM BICARBONATE [Concomitant]
     Dosage: UNK
  6. ALLOPURINOL [Concomitant]
     Dosage: UNK
  7. ALFUZOSIN HYDROCHLORIDE [Concomitant]
     Dosage: UNK
  8. OMEPRAZOLE [Concomitant]
     Dosage: UNK
  9. BACTRIM [Concomitant]
     Dosage: UNK
  10. HYDRALAZINE [Concomitant]
     Dosage: UNK
  11. GLUCOSAMINE CHONDROITIN COMPLEX [Concomitant]
     Dosage: UNK
  12. VELCADE [Concomitant]
     Dosage: UNK
  13. CENTRUM [Concomitant]
     Dosage: UNK
  14. AMBIEN [Concomitant]
     Dosage: UNK
  15. AMLODIPINE [Concomitant]
     Dosage: UNK
  16. FLUTICASONE PROPIONATE [Concomitant]
     Dosage: UNK
  17. ONDANSETRON HYDROCHLORIDE [Concomitant]
     Dosage: UNK
  18. FINASTERIDE [Concomitant]
     Dosage: UNK
  19. ACYCLOVIR [Concomitant]
     Dosage: UNK
  20. ASPIRIN [Concomitant]
     Dosage: UNK

REACTIONS (3)
  - Drug ineffective [Unknown]
  - Pneumonia [Recovered/Resolved]
  - Drug hypersensitivity [Recovered/Resolved]
